FAERS Safety Report 23422418 (Version 5)
Quarter: 2024Q1

REPORT INFORMATION
  Report Type: Spontaneous
  Country: IT (occurrence: IT)
  Receive Date: 20240119
  Receipt Date: 20240327
  Transmission Date: 20240410
  Serious: Yes (Life-Threatening, Hospitalization, Disabling, Other)
  Sender: FDA-Public Use
  Company Number: IT-BIOGEN-2024BI01245656

PATIENT
  Age: 69 Year
  Sex: Male
  Weight: 62 kg

DRUGS (17)
  1. TOFERSEN [Suspect]
     Active Substance: TOFERSEN
     Indication: Amyotrophic lateral sclerosis
     Route: 050
     Dates: start: 20221201, end: 20240104
  2. METFORMIN [Concomitant]
     Active Substance: METFORMIN HYDROCHLORIDE
     Indication: Diabetes mellitus
     Dosage: 1 TABLET IN THE MORNING AND EVENING
     Route: 050
     Dates: start: 19900615
  3. ERTUGLIFLOZIN [Concomitant]
     Active Substance: ERTUGLIFLOZIN
     Indication: Diabetes mellitus
     Dosage: 1 TABLET IN THE MORNING
     Route: 050
     Dates: start: 20221006
  4. LANSOPRAZOLE [Concomitant]
     Active Substance: LANSOPRAZOLE
     Indication: Gastrointestinal disorder prophylaxis
     Dosage: 1 TABLET BEFORE BREAKFAST
     Route: 050
     Dates: start: 20150615
  5. ASPIRIN [Concomitant]
     Active Substance: ASPIRIN
     Indication: Arteriosclerosis
     Dosage: 1 TABLET AFTER LUNCH
     Route: 050
     Dates: start: 20100615
  6. DIAMICRON [Concomitant]
     Indication: Diabetes mellitus
     Dosage: 1/2 TABLET IN THE EVENING
     Route: 050
     Dates: start: 20000615
  7. FLUVASTATIN [Concomitant]
     Active Substance: FLUVASTATIN SODIUM
     Indication: Dyslipidaemia
     Dosage: 1 TABLET IN THE EVENING
     Route: 050
     Dates: start: 20200220
  8. RILUZOLE [Concomitant]
     Active Substance: RILUZOLE
     Indication: Amyotrophic lateral sclerosis
     Dosage: 1 TABLET 8AM-8PM
     Route: 050
     Dates: start: 20181127
  9. .ALPHA.-TOCOPHEROL ACETATE, D- [Concomitant]
     Active Substance: .ALPHA.-TOCOPHEROL ACETATE, D-
     Indication: Product used for unknown indication
     Route: 050
     Dates: start: 20181127
  10. L-acetyl carnitine [Concomitant]
     Indication: Product used for unknown indication
     Route: 050
     Dates: start: 20190110
  11. DIETARY SUPPLEMENT\TAUROURSODEOXYCHOLIC ACID [Concomitant]
     Active Substance: DIETARY SUPPLEMENT\TAUROURSODEOXYCHOLIC ACID
     Indication: Product used for unknown indication
     Route: 050
     Dates: start: 20190110
  12. LYRICA [Concomitant]
     Active Substance: PREGABALIN
     Indication: Neuralgia
     Dosage: 1 TABLET 8AM AND 8PM
     Route: 050
     Dates: start: 20210429
  13. EZETIMIBE\ROSUVASTATIN [Concomitant]
     Active Substance: EZETIMIBE\ROSUVASTATIN
     Indication: Dyslipidaemia
     Dosage: 1 TABLET IN THE EVENING
     Route: 050
     Dates: start: 20231205
  14. ENOXAPARIN SODIUM [Concomitant]
     Active Substance: ENOXAPARIN SODIUM
     Indication: Arterial disorder
     Dosage: 1 VIAL 6PM
     Route: 050
  15. VITAMIN E [Concomitant]
     Active Substance: .ALPHA.-TOCOPHEROL
     Indication: Amyotrophic lateral sclerosis
     Dosage: 1 TABLET 8AM-8PM
     Route: 050
     Dates: start: 20181127
  16. LEVACECARNINE HYDROCHLORIDE [Concomitant]
     Active Substance: LEVACECARNINE HYDROCHLORIDE
     Indication: Amyotrophic lateral sclerosis
     Dosage: 2 TABLETS 8AM-2PM-8PM
     Route: 050
     Dates: start: 20190110
  17. TAURO [Concomitant]
     Indication: Amyotrophic lateral sclerosis
     Dosage: 4 TABLETS 8AM-8PM
     Route: 050
     Dates: start: 20190110

REACTIONS (3)
  - Acute respiratory failure [Recovered/Resolved with Sequelae]
  - Acute respiratory distress syndrome [Not Recovered/Not Resolved]
  - Interstitial lung disease [Not Recovered/Not Resolved]

NARRATIVE: CASE EVENT DATE: 20240109
